FAERS Safety Report 23103652 (Version 1)
Quarter: 2023Q4

REPORT INFORMATION
  Report Type: Spontaneous
  Country: US (occurrence: None)
  Receive Date: 20231024
  Receipt Date: 20231024
  Transmission Date: 20240109
  Serious: Yes (Death)
  Sender: FDA-Public Use
  Company Number: None

PATIENT
  Age: 75 Year
  Sex: Female
  Weight: 40.5 kg

DRUGS (1)
  1. HEPARIN [Suspect]
     Active Substance: HEPARIN SODIUM
     Indication: Surgery
     Dates: start: 20220308, end: 20220313

REACTIONS (7)
  - Heparin-induced thrombocytopenia [None]
  - Thrombosis [None]
  - Postoperative thrombosis [None]
  - Dialysis related complication [None]
  - Cardiac procedure complication [None]
  - Cardiac arrest [None]
  - Acute kidney injury [None]

NARRATIVE: CASE EVENT DATE: 20220308
